FAERS Safety Report 8838404 (Version 1)
Quarter: 2012Q4

REPORT INFORMATION
  Report Type: 
  Country: US (occurrence: US)
  Receive Date: 20121012
  Receipt Date: 20121012
  Transmission Date: 20130627
  Serious: No
  Sender: FDA-Public Use
  Company Number: US-BAYER-2012-106942

PATIENT
  Age: 83 Year
  Sex: Female
  Weight: 67.12 kg

DRUGS (2)
  1. ALEVE CAPLET/TABLET,MIDOL EXTENDED RELIEF CAPLET [Suspect]
     Indication: ARTHRITIS
     Dosage: 2 DF, QD
     Dates: start: 1997
  2. PRAVASTATIN [Concomitant]

REACTIONS (1)
  - No adverse event [None]
